FAERS Safety Report 10244784 (Version 1)
Quarter: 2014Q1

REPORT INFORMATION
  Report Type: Spontaneous
  Country: US (occurrence: None)
  Receive Date: 20140306
  Receipt Date: 20140306
  Transmission Date: 20141002
  Serious: Yes (Other)
  Sender: FDA-Public Use
  Company Number: 163-21880-13040413

PATIENT
  Age: 56 Year
  Sex: Female

DRUGS (13)
  1. REVLIMID (LENALIDOMIDE) (10 MILLIGRAM, CAPSULES) [Suspect]
     Indication: PLASMA CELL MYELOMA
     Dosage: 10 MG, 28 IN 28 D, PO
     Route: 048
     Dates: start: 20130209
  2. WATER PILL (ALL OTHER THERAPEUTIC PRODUCTS) (UNKNOWN) [Concomitant]
  3. HYDROCHLOROTHIAZIDE (HYDROCHLOROTHIAZIDE) (UNKNOWN) [Concomitant]
  4. LORATADINE (LORATADINE) (TABLETS) [Concomitant]
  5. ZOLOFT (SERTRALINE HYDROCHLORIDE) (UNKNOWN) [Concomitant]
  6. LISINOPRIL (LISINOPRIL) (TABLETS) [Concomitant]
  7. ASA (ACETYLSALICYLIC ACID) (CHEWABLE TABLET) [Concomitant]
  8. PHOSPHA 250 (PHOSPHORUS) (TABLETS) [Concomitant]
  9. OMEPRAZOLE (OMEPRAZOLE) (TABLETS) [Concomitant]
  10. CALTRATE 600+D (CALCITE D) (CHEWABLE TABLET) [Concomitant]
  11. ACYCLOVIR (ACICLOVIR) (CAPSULES) [Concomitant]
  12. SERTRALINE HCL (SERTRALINE HYDROCHLORIDE) (TABLETS) [Concomitant]
  13. IBUPROFEN (IBUPROFEN) (TABLETS) [Concomitant]

REACTIONS (2)
  - Thrombophlebitis superficial [None]
  - Blood potassium decreased [None]
